FAERS Safety Report 14648770 (Version 3)
Quarter: 2018Q2

REPORT INFORMATION
  Report Type: Spontaneous
  Country: DE (occurrence: DE)
  Receive Date: 20180316
  Receipt Date: 20180423
  Transmission Date: 20180711
  Serious: Yes (Hospitalization, Other)
  Sender: FDA-Public Use
  Company Number: DE-PFIZER INC-2018038117

PATIENT
  Age: 52 Year
  Sex: Female
  Weight: 67 kg

DRUGS (2)
  1. TREVILOR RETARD [Suspect]
     Active Substance: VENLAFAXINE HYDROCHLORIDE
     Indication: DEPRESSION
     Dosage: 75 MG, 1X/DAY
     Route: 048
     Dates: start: 2004, end: 2009
  2. ZELDOX [Concomitant]
     Active Substance: ZIPRASIDONE
     Dosage: 50 MG, UNK
     Route: 048

REACTIONS (18)
  - Hypertension [Unknown]
  - Anxiety disorder [Unknown]
  - Tooth disorder [Unknown]
  - Osteitis [Unknown]
  - Mucosal haemorrhage [Recovered/Resolved]
  - Tooth infection [Unknown]
  - Muscle spasms [Unknown]
  - Weight increased [Unknown]
  - Type V hyperlipidaemia [Unknown]
  - Dizziness [Unknown]
  - Pain in jaw [Unknown]
  - Sleep disorder [Unknown]
  - Movement disorder [Not Recovered/Not Resolved]
  - Myalgia [Not Recovered/Not Resolved]
  - Hepatic steatosis [Unknown]
  - Epistaxis [Recovered/Resolved]
  - Somatic symptom disorder [Recovered/Resolved]
  - Weight decreased [Unknown]

NARRATIVE: CASE EVENT DATE: 2004
